FAERS Safety Report 10409067 (Version 1)
Quarter: 2014Q3

REPORT INFORMATION
  Report Type: Spontaneous
  Country: US (occurrence: None)
  Receive Date: 20140825
  Receipt Date: 20140825
  Transmission Date: 20150326
  Serious: Yes (Other)
  Sender: FDA-Public Use
  Company Number: None

PATIENT
  Age: 8 Month
  Sex: Female
  Weight: 8.62 kg

DRUGS (1)
  1. LITTLE FEVERS BY LITTLE REMEDIES [Suspect]
     Active Substance: ACETAMINOPHEN
     Indication: TEETHING
     Dosage: ONLY ONCE TEETHING TAKEN BY MOUTH
     Route: 048

REACTIONS (2)
  - Convulsion [None]
  - Fatigue [None]

NARRATIVE: CASE EVENT DATE: 20140824
